FAERS Safety Report 13899055 (Version 1)
Quarter: 2017Q3

REPORT INFORMATION
  Report Type: Spontaneous
  Country: US (occurrence: None)
  Receive Date: 20170817
  Receipt Date: 20170817
  Transmission Date: 20171127
  Serious: Yes (Hospitalization)
  Sender: FDA-Public Use
  Company Number: None

PATIENT
  Age: 56 Year
  Sex: Male
  Weight: 98.43 kg

DRUGS (1)
  1. ERBITUX [Suspect]
     Active Substance: CETUXIMAB
     Indication: COLON CANCER
     Route: 042
     Dates: start: 20170807

REACTIONS (7)
  - Respiratory arrest [None]
  - Pulse absent [None]
  - Blood glucose increased [None]
  - Erythema [None]
  - Fall [None]
  - Infusion related reaction [None]
  - Blood pressure immeasurable [None]

NARRATIVE: CASE EVENT DATE: 20170807
